FAERS Safety Report 21749849 (Version 2)
Quarter: 2022Q4

REPORT INFORMATION
  Report Type: Report from Study
  Country: US (occurrence: US)
  Receive Date: 20221219
  Receipt Date: 20221227
  Transmission Date: 20230113
  Serious: Yes (Hospitalization, Other)
  Sender: FDA-Public Use
  Company Number: US-ALNYLAM PHARMACEUTICALS, INC.-ALN-2022-004098

PATIENT

DRUGS (1)
  1. GIVLAARI [Suspect]
     Active Substance: GIVOSIRAN SODIUM
     Indication: Porphyria acute
     Dosage: UNK
     Route: 065
     Dates: start: 20201209, end: 20201209

REACTIONS (6)
  - Haemoptysis [Unknown]
  - Pneumonia [Unknown]
  - Vascular injury [Unknown]
  - Porphyria acute [Unknown]
  - Cough [Unknown]
  - Intentional dose omission [Unknown]
